FAERS Safety Report 5623659-X (Version None)
Quarter: 2008Q1

REPORT INFORMATION
  Report Type: 
  Country: None (occurrence: None)
  Receive Date: 20080212
  Receipt Date: 20080205
  Transmission Date: 20080703
  Serious: Yes (Other)
  Sender: FDA-Public Use
  Company Number: US-PFIZER INC-2008011634

PATIENT
  Sex: Male
  Weight: 154.54 kg

DRUGS (3)
  1. CELEBREX [Suspect]
     Indication: INJURY
     Dosage: TEXT:DAILY
  2. CELEBREX [Suspect]
     Indication: ARTHRITIS
  3. CORTISONE ACETATE [Suspect]
     Indication: ARTHRITIS

REACTIONS (3)
  - JOINT EFFUSION [None]
  - MIGRAINE [None]
  - PALPITATIONS [None]
